FAERS Safety Report 7070584-6 (Version None)
Quarter: 2010Q4

REPORT INFORMATION
  Report Type: 
  Country: None (occurrence: None)
  Receive Date: 20101029
  Receipt Date: 20101025
  Transmission Date: 20110411
  Serious: Yes (Hospitalization, Other)
  Sender: FDA-Public Use
  Company Number: US-PFIZER INC-2010105714

PATIENT
  Sex: Female

DRUGS (2)
  1. CHANTIX [Suspect]
     Indication: SMOKING CESSATION THERAPY
     Dosage: STARTING MONTH PACK 0.5 MG TABS X 11 AND 1 MG X 14 AND 1 CONTINUING MONTH PACK 1MG TABS
     Dates: start: 20070914, end: 20071101
  2. TRAZODONE [Concomitant]
     Indication: INSOMNIA
     Dosage: UNK
     Dates: start: 20001101

REACTIONS (10)
  - ANXIETY DISORDER [None]
  - COGNITIVE DISORDER [None]
  - DYSPHORIA [None]
  - INSOMNIA [None]
  - INTENTIONAL OVERDOSE [None]
  - MAJOR DEPRESSION [None]
  - MANIA [None]
  - MENTAL DISORDER [None]
  - PARANOIA [None]
  - SUICIDE ATTEMPT [None]
